FAERS Safety Report 9382324 (Version 2)
Quarter: 2013Q3

REPORT INFORMATION
  Report Type: Spontaneous
  Country: IT (occurrence: IT)
  Receive Date: 20130703
  Receipt Date: 20130809
  Transmission Date: 20140515
  Serious: Yes (Hospitalization)
  Sender: FDA-Public Use
  Company Number: IT-PFIZER INC-2013197430

PATIENT
  Age: 44 Year
  Sex: Female

DRUGS (1)
  1. LYRICA [Suspect]
     Indication: HEADACHE
     Dosage: 1 DF, 1X/DAY
     Route: 048
     Dates: start: 20130619, end: 20130622

REACTIONS (4)
  - Off label use [Unknown]
  - Asthenia [Recovering/Resolving]
  - Palpitations [Recovering/Resolving]
  - Vertigo [Recovering/Resolving]
